FAERS Safety Report 24950224 (Version 1)
Quarter: 2025Q1

REPORT INFORMATION
  Report Type: Spontaneous
  Country: FR (occurrence: FR)
  Receive Date: 20250210
  Receipt Date: 20250210
  Transmission Date: 20250408
  Serious: Yes (Other)
  Sender: JUBILANT
  Company Number: FR-JUBILANT CADISTA PHARMACEUTICALS-2025JUB00010

PATIENT
  Sex: Male

DRUGS (1)
  1. METHYLPREDNISOLONE [Suspect]
     Active Substance: METHYLPREDNISOLONE
     Indication: Bronchopulmonary dysplasia
     Dosage: 300 MG/M2, 1X/DAY
     Route: 042

REACTIONS (2)
  - Necrotising colitis [Unknown]
  - Colitis ulcerative [Unknown]
